FAERS Safety Report 4951474-9 (Version None)
Quarter: 2006Q1

REPORT INFORMATION
  Report Type: 
  Country: None (occurrence: None)
  Receive Date: 20060317
  Receipt Date: 20060306
  Transmission Date: 20060701
  Serious: No
  Sender: FDA-Public Use
  Company Number: TPA2006A00391

PATIENT
  Age: 76 Year
  Sex: Female
  Weight: 48.0813 kg

DRUGS (11)
  1. ACTOS [Suspect]
     Indication: DIABETES MELLITUS NON-INSULIN-DEPENDENT
     Dosage: SEE IMAGE
     Route: 048
     Dates: start: 20060228
  2. ACTOS [Suspect]
     Indication: DIABETES MELLITUS NON-INSULIN-DEPENDENT
     Dosage: SEE IMAGE
     Route: 048
     Dates: start: 20060303
  3. GLIPIZIDE [Concomitant]
  4. COZAAR [Concomitant]
  5. LIPITOR [Concomitant]
  6. VITAMIN E [Concomitant]
  7. MULTI-VITAMIN [Concomitant]
  8. OMEGA-3 FISH OIL (FISH OIL) [Concomitant]
  9. GARLIC TABLETS (ALLIUM SATIVUM) [Concomitant]
  10. ASPIRIN [Concomitant]
  11. GLUCOSAMINE [Concomitant]

REACTIONS (1)
  - INCORRECT DOSE ADMINISTERED [None]
